FAERS Safety Report 24782284 (Version 1)
Quarter: 2024Q4

REPORT INFORMATION
  Report Type: Spontaneous
  Country: JP (occurrence: JP)
  Receive Date: 20241227
  Receipt Date: 20241227
  Transmission Date: 20250114
  Serious: Yes (Hospitalization, Other)
  Sender: REGENERON
  Company Number: JP-BAYER-2024A181583

PATIENT
  Sex: Male

DRUGS (1)
  1. EYLEA [Suspect]
     Active Substance: AFLIBERCEPT
     Indication: Age-related macular degeneration
     Dosage: DAILY DOSE 2 MG; SOLUTION FOR INJECTION IN PRE-FILLED SYRINGE; 40 MG/ML
     Route: 031

REACTIONS (5)
  - Retinal vein occlusion [Unknown]
  - Vitreous haemorrhage [Unknown]
  - Ocular hypertension [Unknown]
  - Posterior capsule rupture [Unknown]
  - Cataract [Unknown]
